FAERS Safety Report 6778905-6 (Version None)
Quarter: 2010Q2

REPORT INFORMATION
  Report Type: 
  Country: None (occurrence: None)
  Receive Date: 20100618
  Receipt Date: 20100611
  Transmission Date: 20101027
  Serious: Yes (Hospitalization)
  Sender: FDA-Public Use
  Company Number: TR-B.I. PHARMACEUTICALS,INC./RIDGEFIELD-2010-DE-03221TK

PATIENT
  Age: 74 Year
  Sex: Female

DRUGS (7)
  1. SPIRIVA [Suspect]
     Indication: CHRONIC OBSTRUCTIVE PULMONARY DISEASE
     Dosage: 1 ANZ
     Route: 055
     Dates: start: 20100601, end: 20100603
  2. ADALAT [Concomitant]
     Indication: HYPERTENSION
     Dosage: 60 MG
     Route: 048
  3. ZYPREXA [Concomitant]
     Route: 048
  4. CIPRALEX [Concomitant]
     Indication: DEPRESSION
     Route: 048
  5. ROCEPHIN [Concomitant]
     Indication: INFECTION
     Dosage: 2 ANZ
  6. FORADIL [Concomitant]
     Indication: CHRONIC OBSTRUCTIVE PULMONARY DISEASE
     Route: 055
     Dates: end: 20100603
  7. SERETIDE [Concomitant]
     Indication: CHRONIC OBSTRUCTIVE PULMONARY DISEASE
     Route: 055
     Dates: end: 20100603

REACTIONS (2)
  - ERYTHEMA [None]
  - RASH [None]
